FAERS Safety Report 23472190 (Version 1)
Quarter: 2024Q1

REPORT INFORMATION
  Report Type: Report from Study
  Country: GR (occurrence: None)
  Receive Date: 20240202
  Receipt Date: 20240202
  Transmission Date: 20240410
  Serious: Yes (Other)
  Sender: FDA-Public Use
  Company Number: 2024A026044

PATIENT
  Sex: Male

DRUGS (3)
  1. ACLIDINIUM BROMIDE\FORMOTEROL FUMARATE [Suspect]
     Active Substance: ACLIDINIUM BROMIDE\FORMOTEROL FUMARATE
     Indication: Chronic obstructive pulmonary disease
     Dosage: 1X2, PER OS
     Route: 055
     Dates: start: 20240119, end: 20240120
  2. BLOCATENS 10MG [Concomitant]
     Indication: Hypertension
     Dosage: PER OS, 1X110.0MG UNKNOWN
     Dates: start: 20210629
  3. ELIQUIS [Concomitant]
     Active Substance: APIXABAN
     Indication: Thrombosis

REACTIONS (1)
  - Rash pruritic [Recovered/Resolved]
